FAERS Safety Report 21473808 (Version 1)
Quarter: 2022Q4

REPORT INFORMATION
  Report Type: Report from Study
  Country: US (occurrence: US)
  Receive Date: 20221018
  Receipt Date: 20221018
  Transmission Date: 20230112
  Serious: Yes (Other)
  Sender: FDA-Public Use
  Company Number: US-BRISTOL-MYERS SQUIBB COMPANY-2022-071610

PATIENT
  Age: 56 Year
  Sex: Male
  Weight: 101.15 kg

DRUGS (1)
  1. POMALYST [Suspect]
     Active Substance: POMALIDOMIDE
     Indication: Plasma cell myeloma
     Dosage: DAILY?LOT NUMBER C24741 AND EXPIRY 31 MAR 2025
     Route: 048

REACTIONS (4)
  - SARS-CoV-2 test positive [Unknown]
  - Tooth injury [Unknown]
  - Nasopharyngitis [Recovering/Resolving]
  - Ocular discomfort [Unknown]

NARRATIVE: CASE EVENT DATE: 20220613
